FAERS Safety Report 25647885 (Version 1)
Quarter: 2025Q3

REPORT INFORMATION
  Report Type: Spontaneous
  Country: US (occurrence: US)
  Receive Date: 20250806
  Receipt Date: 20250806
  Transmission Date: 20251021
  Serious: No
  Sender: SUNOVION
  Company Number: US-MYOVANT SCIENCES GMBH-2024MYSCI0600772

PATIENT
  Age: 75 Year
  Sex: Male

DRUGS (29)
  1. ORGOVYX [Suspect]
     Active Substance: RELUGOLIX
     Indication: Prostate cancer
     Dosage: 120 MILLIGRAM
     Route: 048
  2. ORGOVYX [Suspect]
     Active Substance: RELUGOLIX
     Dosage: 360 MG, SINGLE
     Route: 048
     Dates: start: 20240615, end: 20240615
  3. ORGOVYX [Suspect]
     Active Substance: RELUGOLIX
     Dosage: 120 MG, QD
     Route: 048
     Dates: start: 20240616
  4. ELIQUIS [Concomitant]
     Active Substance: APIXABAN
     Indication: Anticoagulant therapy
     Dosage: 5 MG, BID
  5. METOPROLOL SUCCINATE [Concomitant]
     Active Substance: METOPROLOL SUCCINATE
     Indication: Blood pressure abnormal
     Dosage: HALF A PILL ONCE DAILY
  6. ATORVASTATIN [Concomitant]
     Active Substance: ATORVASTATIN
     Indication: Blood cholesterol abnormal
     Dosage: 40 MG, QD
  7. POTASSIUM CHLORIDE [Concomitant]
     Active Substance: POTASSIUM CHLORIDE
     Indication: Blood potassium decreased
     Dosage: 10 MEQ, QD
  8. FUROSEMIDE [Concomitant]
     Active Substance: FUROSEMIDE
     Indication: Fluid retention
     Dosage: 20 MG, Q3WEEKS
  9. TAMSULOSIN [Concomitant]
     Active Substance: TAMSULOSIN
     Indication: Urine flow decreased
     Dosage: 4 MG, QD
  10. PREDNISONE [Concomitant]
     Active Substance: PREDNISONE
     Indication: Prostate cancer
     Dosage: 5 MG, QD
  11. ASPIRIN [Concomitant]
     Active Substance: ASPIRIN
     Dosage: 81 MG, QD
  12. VITAMIN D3 [Concomitant]
     Active Substance: CHOLECALCIFEROL
     Indication: Vitamin D
     Dosage: 1000 IU, QD
  13. VITAMINS [Concomitant]
     Active Substance: VITAMINS
     Dosage: QD
  14. Culturelle probiotics health + wellness [Concomitant]
     Dosage: UNK, QD
  15. MAGNESIUM [Concomitant]
     Active Substance: MAGNESIUM
     Dosage: 250 MG, QD
  16. Clearplex [Concomitant]
     Dosage: UNK, QD
  17. METAMUCIL [Concomitant]
     Active Substance: PLANTAGO SEED
  18. ABIRATERONE ACETATE [Concomitant]
     Active Substance: ABIRATERONE ACETATE
     Dosage: 500 MG, BID
  19. ACETAMINOPHEN [Concomitant]
     Active Substance: ACETAMINOPHEN
  20. AMOXICILLIN AND CLAVULANATE POTASSIUM [Concomitant]
     Active Substance: AMOXICILLIN\CLAVULANATE POTASSIUM
  21. CULTURELLE [Concomitant]
     Active Substance: LACTOBACILLUS RHAMNOSUS
  22. FAMOTIDINE [Concomitant]
     Active Substance: FAMOTIDINE
  23. FESOTERODINE [Concomitant]
     Active Substance: FESOTERODINE
  24. LASIX [Concomitant]
     Active Substance: FUROSEMIDE
  25. MAGNESIUM OXIDE [Concomitant]
     Active Substance: MAGNESIUM OXIDE
  26. Metamucil 4 in 1 fiber [Concomitant]
  27. METFORMIN [Concomitant]
     Active Substance: METFORMIN HYDROCHLORIDE
  28. NITROFURANTOIN [Concomitant]
     Active Substance: NITROFURANTOIN
  29. OMEPRAZOLE [Concomitant]
     Active Substance: OMEPRAZOLE

REACTIONS (8)
  - Dyspnoea [Unknown]
  - Peripheral swelling [Unknown]
  - Pruritus [Unknown]
  - Blood bilirubin increased [Unknown]
  - Joint swelling [Unknown]
  - Fatigue [Unknown]
  - Hot flush [Not Recovered/Not Resolved]
  - Asthenia [Unknown]
